FAERS Safety Report 4426934-X (Version None)
Quarter: 2004Q3

REPORT INFORMATION
  Report Type: 
  Country: None (occurrence: None)
  Receive Date: 20040811
  Receipt Date: 20040730
  Transmission Date: 20050211
  Serious: Yes (Hospitalization, Disabling)
  Sender: FDA-Public Use
  Company Number: HQWYE700902AUG04

PATIENT
  Age: 33 Year
  Sex: Female
  Weight: 54.48 kg

DRUGS (3)
  1. EFFEXOR XR [Suspect]
     Indication: GENERALISED ANXIETY DISORDER
     Dosage: STARTED WITH 75 MG, THEN 150 MG, THEN 225 MG/DAY. INCREASED AT 75 MG INTERVALS OVER A YEAR, ORAL
     Route: 048
     Dates: start: 20020101, end: 20040601
  2. LEXAPRO [Suspect]
     Dates: start: 20040601
  3. ORAL CONTRACEPTIVE NOS [Concomitant]

REACTIONS (9)
  - CONDITION AGGRAVATED [None]
  - CSF TEST ABNORMAL [None]
  - FEELING ABNORMAL [None]
  - HEADACHE [None]
  - HYPERSOMNIA [None]
  - IMPAIRED WORK ABILITY [None]
  - MIGRAINE [None]
  - SLEEP DISORDER [None]
  - SUBDURAL HAEMATOMA [None]
